FAERS Safety Report 7473081-9 (Version None)
Quarter: 2011Q2

REPORT INFORMATION
  Report Type: 
  Country: None (occurrence: None)
  Receive Date: 20110511
  Receipt Date: 20110502
  Transmission Date: 20111010
  Serious: Yes (Other)
  Sender: FDA-Public Use
  Company Number: CA-ELI_LILLY_AND_COMPANY-CA201105000120

PATIENT
  Sex: Male
  Weight: 99.773 kg

DRUGS (6)
  1. SERTRALINE HYDROCHLORIDE [Concomitant]
  2. ZYPREXA [Suspect]
     Indication: MENTAL DISORDER
     Dosage: 5 MG, QD
     Dates: start: 19991229
  3. DIAZEPAM [Concomitant]
  4. LORAZEPAM [Concomitant]
  5. ZYPREXA [Suspect]
     Dosage: 10 MG, QD
     Dates: start: 20000508, end: 20020702
  6. CLONAZEPAM [Concomitant]

REACTIONS (13)
  - TYPE 2 DIABETES MELLITUS [None]
  - NEUROPATHY PERIPHERAL [None]
  - BLOOD CHOLESTEROL INCREASED [None]
  - BLOOD ALKALINE PHOSPHATASE INCREASED [None]
  - POLYCYTHAEMIA [None]
  - VISION BLURRED [None]
  - DIZZINESS [None]
  - RENAL HYPERTROPHY [None]
  - HEPATIC STEATOSIS [None]
  - HYPERTENSION [None]
  - BLOOD TRIGLYCERIDES INCREASED [None]
  - NEPHROPATHY [None]
  - MUSCLE ATROPHY [None]
